FAERS Safety Report 7917328-0 (Version None)
Quarter: 2011Q4

REPORT INFORMATION
  Report Type: 
  Country: None (occurrence: None)
  Receive Date: 20111116
  Receipt Date: 20111108
  Transmission Date: 20120403
  Serious: Yes (Hospitalization, Disabling, Other)
  Sender: FDA-Public Use
  Company Number: PHHY2009JP25290

PATIENT
  Sex: Male

DRUGS (3)
  1. OXYCONTIN [Concomitant]
     Dosage: 10 MG, UNK
     Route: 048
     Dates: start: 20080204, end: 20080206
  2. ZOLEDRONIC ACID [Suspect]
     Indication: URETERIC CANCER
     Dosage: 4 MG EVERY FOUR WEEKS
     Route: 042
     Dates: start: 20071210, end: 20080206
  3. LOXONIN [Concomitant]
     Dosage: 120 MG, UNK
     Route: 048
     Dates: start: 20080131, end: 20080206

REACTIONS (7)
  - COMPRESSION FRACTURE [None]
  - NEOPLASM MALIGNANT [None]
  - HYPOCALCAEMIA [None]
  - HYPERCALCAEMIA [None]
  - NEOPLASM PROGRESSION [None]
  - TERMINAL STATE [None]
  - SPINAL CORD INJURY THORACIC [None]
